FAERS Safety Report 22952787 (Version 3)
Quarter: 2023Q4

REPORT INFORMATION
  Report Type: Spontaneous
  Country: GB (occurrence: GB)
  Receive Date: 20230918
  Receipt Date: 20231212
  Transmission Date: 20240110
  Serious: Yes (Other)
  Sender: FDA-Public Use
  Company Number: GB-CELLTRION INC.-2023GB009616

PATIENT

DRUGS (12)
  1. INFLIXIMAB [Suspect]
     Active Substance: INFLIXIMAB
     Indication: Colitis ulcerative
     Dosage: 325 MG, 6 WEEKLY, STRENGTH: 1 MG
     Route: 042
  2. INFLIXIMAB [Suspect]
     Active Substance: INFLIXIMAB
     Dosage: 300 MG, 6 WEEKLY (STRENGTH: 5 MG/KG)
     Route: 042
  3. INFLIXIMAB [Suspect]
     Active Substance: INFLIXIMAB
     Dosage: 300 MG 6 WEEKLY, STRENGTH: 5 MG/KG
     Route: 042
  4. INFLIXIMAB [Suspect]
     Active Substance: INFLIXIMAB
     Dosage: 285 MG 6 WEEKLY, REMSIMA 1 MG BAXTER
     Route: 042
  5. SODIUM CHLORIDE [Suspect]
     Active Substance: SODIUM CHLORIDE
     Indication: Medication dilution
     Dosage: AT AN UNSPECIFIED DOSE SIX WEEKLY
     Route: 042
  6. SODIUM CHLORIDE [Suspect]
     Active Substance: SODIUM CHLORIDE
     Dosage: AT AN UNSPECIFIED DOSE SIX WEEKLY
     Route: 042
  7. SODIUM CHLORIDE [Suspect]
     Active Substance: SODIUM CHLORIDE
     Dosage: 300 MG 6 WEEKLY, STRENGTH: 5 MG/KG
     Route: 042
  8. SODIUM CHLORIDE [Suspect]
     Active Substance: SODIUM CHLORIDE
     Dosage: AT AN UNSPECIFIED DOSE, 6 WEEKLY
     Route: 042
  9. WATER FOR INJECTION [Suspect]
     Active Substance: WATER
     Indication: Medication dilution
     Dosage: AT AN UNSPECIFIED DOSE SIX WEEKLY
     Route: 042
  10. WATER FOR INJECTION [Suspect]
     Active Substance: WATER
     Dosage: AT AN UNSPECIFIED DOSE SIX WEEKLY
     Route: 042
  11. WATER FOR INJECTION [Suspect]
     Active Substance: WATER
     Dosage: 300 MG 6 WEEKLY, STRENGTH: 5 MG/KG
     Route: 042
  12. WATER FOR INJECTION [Suspect]
     Active Substance: WATER
     Dosage: AT AN UNSPECIFIED DOSE, 6 WEEKLY
     Route: 042

REACTIONS (13)
  - Gastrointestinal sounds abnormal [Unknown]
  - Flatulence [Unknown]
  - Secretion discharge [Unknown]
  - Abdominal discomfort [Unknown]
  - Abdominal tenderness [Unknown]
  - Haemorrhoids [Unknown]
  - Defaecation urgency [Unknown]
  - Haematochezia [Unknown]
  - Abdominal pain [Unknown]
  - Diarrhoea [Unknown]
  - Haemorrhage [Unknown]
  - Fatigue [Unknown]
  - Intentional product use issue [Unknown]
